FAERS Safety Report 6373581-9 (Version None)
Quarter: 2009Q3

REPORT INFORMATION
  Report Type: 
  Country: None (occurrence: None)
  Receive Date: 20090924
  Receipt Date: 20090302
  Transmission Date: 20100115
  Serious: No
  Sender: FDA-Public Use
  Company Number: US-ASTRAZENECA-2009UW05663

PATIENT
  Sex: Female

DRUGS (2)
  1. SEROQUEL [Suspect]
     Route: 048
     Dates: start: 20090301
  2. BIRTH CONTROL PILL [Concomitant]

REACTIONS (4)
  - DYSARTHRIA [None]
  - HEART RATE INCREASED [None]
  - SOMNOLENCE [None]
  - THYROID DISORDER [None]
